FAERS Safety Report 5234916-3 (Version None)
Quarter: 2007Q1

REPORT INFORMATION
  Report Type: 
  Country: None (occurrence: None)
  Receive Date: 20070209
  Receipt Date: 20070130
  Transmission Date: 20070707
  Serious: Yes (Hospitalization)
  Sender: FDA-Public Use
  Company Number: DE-PFIZER INC-2007008992

PATIENT
  Sex: Male

DRUGS (6)
  1. VIAGRA [Suspect]
     Route: 048
  2. PANTOPRAZOLE SODIUM [Concomitant]
  3. ZOVIRAX [Concomitant]
  4. IRBESARTAN [Concomitant]
  5. ASCOTOP [Concomitant]
  6. LAMISIL [Concomitant]

REACTIONS (2)
  - PLEURAL EFFUSION [None]
  - PULMONARY EMBOLISM [None]
